FAERS Safety Report 8771316 (Version 2)
Quarter: 2012Q4

REPORT INFORMATION
  Report Type: 
  Country: BR (occurrence: BR)
  Receive Date: 20120906
  Receipt Date: 20120911
  Transmission Date: 20130627
  Serious: Yes (Other)
  Sender: FDA-Public Use
  Company Number: PHHY2012BR076584

PATIENT
  Sex: Female

DRUGS (7)
  1. DIOVAN HCT [Suspect]
     Indication: BLOOD PRESSURE ABNORMAL
     Dosage: 1 DF, QD
     Route: 048
  2. DIOVAN [Suspect]
     Indication: BLOOD PRESSURE ABNORMAL
  3. SELOZOK [Concomitant]
     Indication: BLOOD PRESSURE
     Dosage: 1 DF (1 tablet a day)
     Route: 048
  4. CHLORTHALIDONE [Concomitant]
     Indication: DIURETIC THERAPY
     Dosage: 1 DF (1 tablet a day)
     Route: 048
  5. MICARDIS [Concomitant]
     Indication: BLOOD PRESSURE
     Dosage: 1 DF (1 tablet a day)
     Route: 048
  6. PLURAIR [Concomitant]
     Indication: RHINITIS
     Dosage: 50 mg (put it inside the nostril twice a day)
     Route: 045
  7. LEVOCETIRIZINE DIHYDROCHLORIDE [Concomitant]
     Indication: HYPERSENSITIVITY
     Dosage: 1 DF (1 tablet a day)
     Route: 048

REACTIONS (1)
  - Asthma [Not Recovered/Not Resolved]
